FAERS Safety Report 9436894 (Version 2)
Quarter: 2013Q4

REPORT INFORMATION
  Report Type: Spontaneous
  Country: US (occurrence: US)
  Receive Date: 20130802
  Receipt Date: 20131121
  Transmission Date: 20140711
  Serious: No
  Sender: FDA-Public Use
  Company Number: US-PFIZER INC-2013225141

PATIENT
  Sex: Male

DRUGS (1)
  1. PRISTIQ [Suspect]
     Dosage: UNK
     Dates: end: 201307

REACTIONS (9)
  - Withdrawal syndrome [Unknown]
  - Insomnia [Unknown]
  - Somnolence [Unknown]
  - Nightmare [Unknown]
  - Fatigue [Unknown]
  - Tremor [Unknown]
  - Anger [Unknown]
  - Psychomotor hyperactivity [Unknown]
  - Irritability [Unknown]
